FAERS Safety Report 14173527 (Version 8)
Quarter: 2020Q1

REPORT INFORMATION
  Report Type: Spontaneous
  Country: US (occurrence: US)
  Receive Date: 20171109
  Receipt Date: 20200122
  Transmission Date: 20200409
  Serious: Yes (Hospitalization, Other)
  Sender: FDA-Public Use
  Company Number: US-PFIZER INC-2017479917

PATIENT
  Age: 61 Year
  Sex: Female
  Weight: 74.83 kg

DRUGS (8)
  1. IBRANCE [Suspect]
     Active Substance: PALBOCICLIB
     Dosage: 100 MG, CYCLIC (100MG 21 DAYS ON 7 DAY OFF)
     Dates: start: 20160105
  2. LETROZOLE. [Suspect]
     Active Substance: LETROZOLE
     Indication: BREAST CANCER METASTATIC
     Dosage: 2.5 MG, DAILY
     Dates: start: 201601
  3. LETROZOLE. [Suspect]
     Active Substance: LETROZOLE
     Dosage: 2.5 MG, DAILY
     Dates: start: 201601
  4. PEPCID [Concomitant]
     Active Substance: FAMOTIDINE
     Indication: ABDOMINAL DISTENSION
     Dosage: UNK
     Dates: start: 2018
  5. IBRANCE [Suspect]
     Active Substance: PALBOCICLIB
     Indication: BREAST CANCER METASTATIC
     Dosage: 125 MG, CYCLIC
     Dates: end: 20160105
  6. PEPCID [Concomitant]
     Active Substance: FAMOTIDINE
     Indication: NAUSEA
  7. LETROZOLE. [Suspect]
     Active Substance: LETROZOLE
     Dosage: 2.5 MG, DAILY
     Dates: start: 201601
  8. PEPCID [Concomitant]
     Active Substance: FAMOTIDINE
     Indication: ABDOMINAL PAIN UPPER

REACTIONS (26)
  - Feeling abnormal [Recovered/Resolved]
  - Headache [Recovered/Resolved]
  - Sneezing [Unknown]
  - Neutropenia [Unknown]
  - Gait disturbance [Unknown]
  - Epistaxis [Not Recovered/Not Resolved]
  - Nasopharyngitis [Recovered/Resolved]
  - Malaise [Recovered/Resolved]
  - Paraesthesia [Unknown]
  - Dizziness [Unknown]
  - Muscle spasms [Unknown]
  - Pain [Unknown]
  - Skin exfoliation [Unknown]
  - Influenza like illness [Recovered/Resolved]
  - Cystitis [Unknown]
  - Arthralgia [Unknown]
  - Nausea [Recovered/Resolved]
  - Alopecia [Not Recovered/Not Resolved]
  - Stomatitis [Recovering/Resolving]
  - Cough [Unknown]
  - Fatigue [Unknown]
  - Abdominal pain upper [Unknown]
  - Arthralgia [Not Recovered/Not Resolved]
  - Sinusitis [Recovered/Resolved]
  - Pyrexia [Unknown]
  - Abdominal distension [Unknown]

NARRATIVE: CASE EVENT DATE: 201601
